FAERS Safety Report 8519886-4 (Version None)
Quarter: 2012Q3

REPORT INFORMATION
  Report Type: 
  Country: None (occurrence: None)
  Receive Date: 20120719
  Receipt Date: 20120709
  Transmission Date: 20120928
  Serious: No
  Sender: FDA-Public Use
  Company Number: US-BIOGENIDEC-2011BI004798

PATIENT
  Age: 49 Year
  Sex: Male

DRUGS (2)
  1. AVONEX [Suspect]
     Route: 030
     Dates: start: 20101001
  2. AVONEX [Suspect]
     Indication: MULTIPLE SCLEROSIS
     Route: 030
     Dates: start: 20091016, end: 20100101

REACTIONS (4)
  - INFLUENZA LIKE ILLNESS [None]
  - ILL-DEFINED DISORDER [None]
  - MOBILITY DECREASED [None]
  - COGNITIVE DISORDER [None]
